FAERS Safety Report 4459369-4 (Version None)
Quarter: 2004Q3

REPORT INFORMATION
  Report Type: 
  Country: None (occurrence: None)
  Receive Date: 20040927
  Receipt Date: 20040707
  Transmission Date: 20050211
  Serious: Yes (Death, Hospitalization)
  Sender: FDA-Public Use
  Company Number: FR-ROCHE-373893

PATIENT
  Age: 69 Year
  Sex: Female
  Weight: 58 kg

DRUGS (6)
  1. XELODA [Suspect]
     Indication: BREAST CANCER
     Dosage: 1500MG MORNE, 1000MG NOCTE.
     Route: 048
     Dates: start: 20040618, end: 20040702
  2. ARIMIDEX [Concomitant]
     Indication: BREAST CANCER
     Dosage: REGIMEN REPORTED AS ^1 DOSE QD^, NO DOSE SIZE PROVIDED.
     Route: 048
  3. LYTOS [Concomitant]
     Dosage: REGIME REPORTED AS ^2 DOSES A DAY^, NO DOSE SIZE PROVIDED.
     Route: 048
  4. ALDACTONE [Concomitant]
     Route: 048
  5. LASIX [Concomitant]
     Route: 048
  6. ZYRTEC [Concomitant]
     Route: 048

REACTIONS (10)
  - ALCOHOL USE [None]
  - APLASIA [None]
  - BONE MARROW DEPRESSION [None]
  - CEREBRAL HAEMORRHAGE [None]
  - ENTEROBACTER BACTERAEMIA [None]
  - EPISTAXIS [None]
  - GINGIVAL BLEEDING [None]
  - PANCYTOPENIA [None]
  - SEPTIC SHOCK [None]
  - STAPHYLOCOCCAL BACTERAEMIA [None]
